FAERS Safety Report 8445005-9 (Version None)
Quarter: 2012Q2

REPORT INFORMATION
  Report Type: 
  Country: None (occurrence: None)
  Receive Date: 20120618
  Receipt Date: 20120608
  Transmission Date: 20120825
  Serious: Yes (Hospitalization)
  Sender: FDA-Public Use
  Company Number: FR-JNJFOC-20120605356

PATIENT
  Sex: Female

DRUGS (6)
  1. METHOTREXATE [Suspect]
     Indication: ARTHRITIS
     Dates: end: 20120401
  2. ATORVASTATIN [Concomitant]
  3. CITALOPRAM HYDROBROMIDE [Concomitant]
  4. BISOPROLOL FUMARATE [Concomitant]
  5. ALENDRONATE SODIUM [Concomitant]
  6. REMICADE [Suspect]
     Indication: ARTHRITIS
     Route: 042
     Dates: end: 20120315

REACTIONS (2)
  - INTERSTITIAL LUNG DISEASE [None]
  - LUNG NEOPLASM [None]
